FAERS Safety Report 9041232 (Version 1)
Quarter: 2013Q1

REPORT INFORMATION
  Report Type: Spontaneous
  Country: US (occurrence: None)
  Receive Date: 20130123
  Receipt Date: 20130123
  Transmission Date: 20140127
  Serious: No
  Sender: FDA-Public Use
  Company Number: None

PATIENT
  Sex: 0

DRUGS (1)
  1. LARIAM [Suspect]

REACTIONS (18)
  - Depression [None]
  - Suicidal ideation [None]
  - Memory impairment [None]
  - Balance disorder [None]
  - Family stress [None]
  - Loss of employment [None]
  - Economic problem [None]
  - Abnormal behaviour [None]
  - Abnormal behaviour [None]
  - Cognitive disorder [None]
  - Anhedonia [None]
  - Pain [None]
  - Loss of consciousness [None]
  - Convulsion [None]
  - Disturbance in attention [None]
  - Vision blurred [None]
  - Self esteem decreased [None]
  - Insomnia [None]
